FAERS Safety Report 11939545 (Version 1)
Quarter: 2016Q1

REPORT INFORMATION
  Report Type: Report from Study
  Country: DE (occurrence: DE)
  Receive Date: 20160122
  Receipt Date: 20160122
  Transmission Date: 20160526
  Serious: Yes (Hospitalization, Other)
  Sender: FDA-Public Use
  Company Number: DE-TEVA-614352GER

PATIENT
  Age: 52 Year
  Sex: Female

DRUGS (3)
  1. TORASEMID 10 MG [Concomitant]
     Indication: OEDEMA
     Dosage: 10 MILLIGRAM DAILY; 1-0-0
     Route: 048
  2. COPAXONE [Suspect]
     Active Substance: GLATIRAMER ACETATE
     Indication: MULTIPLE SCLEROSIS
     Dosage: 20 MILLIGRAM DAILY;
     Dates: start: 20130319
  3. LISINOPRIL 5 MG [Concomitant]
     Active Substance: LISINOPRIL
     Indication: HYPERTENSION
     Dosage: 5 MILLIGRAM DAILY; 1-0-0
     Route: 048

REACTIONS (2)
  - Appendicitis [Recovered/Resolved]
  - Faecalith [Recovered/Resolved]

NARRATIVE: CASE EVENT DATE: 20151119
